FAERS Safety Report 5596951-5 (Version None)
Quarter: 2007Q4

REPORT INFORMATION
  Report Type: 
  Country: None (occurrence: None)
  Receive Date: 20071220
  Receipt Date: 20071016
  Transmission Date: 20080405
  Serious: Yes (Other)
  Sender: FDA-Public Use
  Company Number: ENTC2007-0307

PATIENT
  Sex: Male

DRUGS (1)
  1. STALEVO 100 [Suspect]

REACTIONS (1)
  - SYNCOPE [None]
